FAERS Safety Report 20144413 (Version 1)
Quarter: 2021Q4

REPORT INFORMATION
  Report Type: Spontaneous
  Country: US (occurrence: None)
  Receive Date: 20211202
  Receipt Date: 20211202
  Transmission Date: 20220303
  Serious: Yes (Hospitalization)
  Sender: FDA-Public Use
  Company Number: None

PATIENT
  Age: 66 Year
  Sex: Female

DRUGS (9)
  1. GLATIRAMER [Suspect]
     Active Substance: GLATIRAMER
     Indication: Multiple sclerosis
     Dosage: FREQUENCY : 3 TIMES A WEEK;?
  2. AMANTADINE [Concomitant]
     Active Substance: AMANTADINE
  3. ATENOLOL [Concomitant]
     Active Substance: ATENOLOL
  4. ESTROGEL [Concomitant]
     Active Substance: ESTRADIOL
  5. LIPITOR [Concomitant]
     Active Substance: ATORVASTATIN CALCIUM
  6. LOSARTAN [Concomitant]
     Active Substance: LOSARTAN
  7. MYRBETRIQ [Concomitant]
     Active Substance: MIRABEGRON
  8. XANAX [Concomitant]
     Active Substance: ALPRAZOLAM
  9. ZANAFLEX [Concomitant]
     Active Substance: TIZANIDINE HYDROCHLORIDE

REACTIONS (1)
  - Fall [None]

NARRATIVE: CASE EVENT DATE: 20211001
